FAERS Safety Report 8925505 (Version 1)
Quarter: 2012Q4

REPORT INFORMATION
  Report Type: 
  Country: US (occurrence: US)
  Receive Date: 20121126
  Receipt Date: 20121126
  Transmission Date: 20130627
  Serious: No
  Sender: FDA-Public Use
  Company Number: US-VERTEX PHARMACEUTICAL INC.-2012-024918

PATIENT
  Sex: Male
  Weight: 89 kg

DRUGS (6)
  1. VX-950 (TELAPREVIR) [Suspect]
     Indication: HEPATITIS C
     Dosage: 750 mg, tid
     Route: 048
     Dates: start: 2012
  2. PEGASYS [Concomitant]
     Indication: HEPATITIS C
     Dosage: 180 ?g, qw
     Route: 058
     Dates: start: 2012
  3. RIBAVIRIN [Concomitant]
     Indication: HEPATITIS C
     Dosage: 1000 mg, qd
     Route: 048
     Dates: start: 2012
  4. NEURONTIN [Concomitant]
     Dosage: 500 mg, prn
     Route: 048
  5. TRAZODONE [Concomitant]
     Dosage: 100 mg, prn
     Route: 048
  6. RISPERDAL [Concomitant]
     Dosage: 0.5 mg, prn
     Route: 048

REACTIONS (2)
  - Ocular hyperaemia [Unknown]
  - Dry eye [Unknown]
